FAERS Safety Report 6795160-1 (Version None)
Quarter: 2010Q2

REPORT INFORMATION
  Report Type: 
  Country: None (occurrence: None)
  Receive Date: 20100625
  Receipt Date: 20100622
  Transmission Date: 20101027
  Serious: Yes (Hospitalization)
  Sender: FDA-Public Use
  Company Number: NL-ROCHE-704492

PATIENT
  Sex: Male
  Weight: 65 kg

DRUGS (15)
  1. BEVACIZUMAB [Suspect]
     Indication: NON-SMALL CELL LUNG CANCER
     Dosage: LAST DOSE PRIOR TO SAE: 22 APRIL 2010, TEMPORARILY INTERRUPTED
     Route: 042
     Dates: start: 20100303, end: 20100512
  2. BEVACIZUMAB [Suspect]
     Dosage: TEMPORARILY INTERRUPTED.
     Route: 042
     Dates: start: 20100521, end: 20100622
  3. CISPLATIN [Suspect]
     Indication: NON-SMALL CELL LUNG CANCER
     Dosage: LAST DOSE PRIOR TO SAE: 21 APRIL 2010, TEMPORARILY INTERRUPTED
     Route: 042
     Dates: start: 20100303, end: 20100512
  4. CISPLATIN [Suspect]
     Route: 042
     Dates: start: 20100521, end: 20100622
  5. PEMETREXED [Suspect]
     Indication: NON-SMALL CELL LUNG CANCER
     Dosage: LAST DOSE PRIOR TO SAE: 21 APRIL 2010, TEMPORARILY INTERRUPTED
     Route: 042
     Dates: start: 20100303, end: 20100512
  6. PEMETREXED [Suspect]
     Dosage: TEMPORARILY INTERRUPTED
     Route: 042
     Dates: start: 20100521, end: 20100622
  7. PANTOZOL [Concomitant]
     Dates: start: 20040801
  8. PANTOZOL [Concomitant]
     Dates: start: 20091226
  9. SUCRALFATE [Concomitant]
     Dates: start: 20100310
  10. FOLIC ACID [Concomitant]
     Dates: start: 20100219
  11. ACETYLSALICYLIC ACID [Concomitant]
     Dosage: DRUG REPORTED AS ACETHYLSALISYLZUUR.
     Dates: start: 20040801
  12. ZOPICLON [Concomitant]
     Dates: start: 20100212
  13. BISOPROLOL [Concomitant]
     Dates: start: 20040902, end: 20100328
  14. BISOPROLOL [Concomitant]
     Dates: start: 20100621
  15. FRAXIPARINE [Concomitant]
     Dates: start: 20100617, end: 20100621

REACTIONS (2)
  - HAEMOGLOBIN DECREASED [None]
  - RENAL IMPAIRMENT [None]
